FAERS Safety Report 4562827-5 (Version None)
Quarter: 2005Q1

REPORT INFORMATION
  Report Type: 
  Country: None (occurrence: None)
  Receive Date: 20050127
  Receipt Date: 20050120
  Transmission Date: 20050727
  Serious: Yes (Hospitalization)
  Sender: FDA-Public Use
  Company Number: PT-GLAXOSMITHKLINE-B0365619A

PATIENT
  Sex: Female

DRUGS (2)
  1. AUGMENTIN [Suspect]
     Indication: ILL-DEFINED DISORDER
     Dosage: 2U PER DAY
     Route: 048
     Dates: start: 20041226, end: 20041227
  2. IBUPROFEN [Concomitant]
     Indication: ILL-DEFINED DISORDER
     Dosage: 3U PER DAY
     Route: 048
     Dates: start: 20041226

REACTIONS (2)
  - APHTHOUS STOMATITIS [None]
  - RASH MACULAR [None]
